FAERS Safety Report 23827339 (Version 2)
Quarter: 2024Q2

REPORT INFORMATION
  Report Type: Report from Study
  Country: CA (occurrence: CA)
  Receive Date: 20240507
  Receipt Date: 20240524
  Transmission Date: 20240716
  Serious: Yes (Other)
  Sender: FDA-Public Use
  Company Number: CA-ABBVIE-5742644

PATIENT
  Sex: Male

DRUGS (1)
  1. LUPRON DEPOT [Suspect]
     Active Substance: LEUPROLIDE ACETATE
     Indication: Prostate cancer
     Dosage: FORM STRENGTH: 22.5 MILLIGRAM
     Route: 030
     Dates: start: 20200501, end: 20240208

REACTIONS (2)
  - Palliative care [Unknown]
  - Prostate cancer [Unknown]

NARRATIVE: CASE EVENT DATE: 20240101
